FAERS Safety Report 11203613 (Version 1)
Quarter: 2015Q2

REPORT INFORMATION
  Report Type: Spontaneous
  Country: RS (occurrence: RS)
  Receive Date: 20150619
  Receipt Date: 20150619
  Transmission Date: 20150821
  Serious: Yes (Other)
  Sender: FDA-Public Use
  Company Number: RS-BAYER-2015-345262

PATIENT
  Age: 66 Year
  Sex: Male

DRUGS (3)
  1. SORTIS [Suspect]
     Active Substance: ATORVASTATIN
     Indication: ISCHAEMIC STROKE
     Dosage: 20 MG, UNK
     Dates: start: 2008
  2. ASPIRIN PROTECT [Suspect]
     Active Substance: ASPIRIN
     Indication: ISCHAEMIC STROKE
     Dosage: 100 MG, UNK
     Route: 048
     Dates: start: 2008
  3. CLOPIDOGREL [Suspect]
     Active Substance: CLOPIDOGREL BISULFATE
     Indication: ISCHAEMIC STROKE
     Dosage: 7 MG, UNK
     Dates: start: 2008

REACTIONS (1)
  - Immune thrombocytopenic purpura [None]
